FAERS Safety Report 5408807-9 (Version None)
Quarter: 2007Q3

REPORT INFORMATION
  Report Type: 
  Country: None (occurrence: None)
  Receive Date: 20070808
  Receipt Date: 20070727
  Transmission Date: 20080115
  Serious: Yes (Other)
  Sender: FDA-Public Use
  Company Number: BR-PFIZER INC-2007056176

PATIENT
  Age: 61 Year
  Sex: Male
  Weight: 90 kg

DRUGS (2)
  1. VIAGRA [Suspect]
     Indication: SEXUAL DYSFUNCTION
     Route: 048
     Dates: start: 20070301, end: 20070601
  2. CAPTOPRIL [Concomitant]
     Route: 048

REACTIONS (5)
  - FATIGUE [None]
  - HAEMOPTYSIS [None]
  - NASOPHARYNGITIS [None]
  - PENILE HAEMORRHAGE [None]
  - VEIN DISORDER [None]
